FAERS Safety Report 6607467-9 (Version None)
Quarter: 2010Q1

REPORT INFORMATION
  Report Type: 
  Country: None (occurrence: None)
  Receive Date: 20100301
  Receipt Date: 20100218
  Transmission Date: 20100710
  Serious: Yes (Other)
  Sender: FDA-Public Use
  Company Number: CA-JNJFOC-20100209128

PATIENT
  Sex: Female
  Weight: 129 kg

DRUGS (4)
  1. REMICADE [Suspect]
     Indication: PSORIASIS
     Dosage: 12TH INFUSION
     Route: 042
  2. REMICADE [Suspect]
     Dosage: 11 INFUSIONS ON UNSPECIFIED DATES
     Route: 042
  3. DERMA SMOOTH [Concomitant]
  4. PROTOPIC [Concomitant]

REACTIONS (2)
  - HYPERTENSION [None]
  - VASCULAR RUPTURE [None]
